FAERS Safety Report 5726067-6 (Version None)
Quarter: 2008Q2

REPORT INFORMATION
  Report Type: 
  Country: None (occurrence: None)
  Receive Date: 20080502
  Receipt Date: 20080423
  Transmission Date: 20081010
  Serious: Yes (Other)
  Sender: FDA-Public Use
  Company Number: US-AMGEN-STX272672

PATIENT
  Sex: Male
  Weight: 92.2 kg

DRUGS (8)
  1. ENBREL [Suspect]
     Indication: RHEUMATOID ARTHRITIS
     Route: 058
     Dates: start: 20000501
  2. METHOTREXATE [Concomitant]
     Route: 048
  3. OXYCONTIN [Concomitant]
  4. FOLIC ACID [Concomitant]
  5. TESTOSTERONE [Concomitant]
  6. BONIVA [Concomitant]
  7. CALCIUM [Concomitant]
  8. PRILOSEC [Concomitant]

REACTIONS (1)
  - RETINAL DETACHMENT [None]
